FAERS Safety Report 6524642-2 (Version None)
Quarter: 2010Q1

REPORT INFORMATION
  Report Type: 
  Country: None (occurrence: None)
  Receive Date: 20100104
  Receipt Date: 20091221
  Transmission Date: 20100710
  Serious: Yes (Disabling, Other)
  Sender: FDA-Public Use
  Company Number: PHEH2009US16440

PATIENT
  Sex: Female

DRUGS (4)
  1. EXJADE [Suspect]
     Indication: CHRONIC MYELOID LEUKAEMIA
     Dosage: 1750 MG, DAILY
     Route: 048
     Dates: start: 20091112, end: 20091119
  2. TASIGNA [Concomitant]
     Indication: CHRONIC MYELOID LEUKAEMIA
     Dosage: 400 MG, BID
     Route: 048
  3. ANAGRELIDE HCL [Concomitant]
     Indication: CHRONIC MYELOID LEUKAEMIA
     Dosage: 1.5 G, BID
     Route: 048
  4. HYDROXYUREA [Concomitant]
     Indication: CHRONIC MYELOID LEUKAEMIA
     Dosage: 1 G, BID
     Route: 048

REACTIONS (6)
  - ABDOMINAL DISTENSION [None]
  - ABDOMINAL PAIN [None]
  - DYSPNOEA [None]
  - FLATULENCE [None]
  - MALIGNANT NEOPLASM PROGRESSION [None]
  - REACTION TO DRUG EXCIPIENTS [None]
